FAERS Safety Report 11031008 (Version 2)
Quarter: 2019Q2

REPORT INFORMATION
  Report Type: Spontaneous
  Country: US (occurrence: US)
  Receive Date: 20150415
  Receipt Date: 20190523
  Transmission Date: 20190711
  Serious: Yes (Other)
  Sender: FDA-Public Use
  Company Number: US-PFIZER INC-2015128764

PATIENT
  Age: 64 Year
  Sex: Female
  Weight: 90.72 kg

DRUGS (2)
  1. CELECOXIB. [Suspect]
     Active Substance: CELECOXIB
     Indication: PAIN
     Dosage: 200 MG, 2X/DAY
     Route: 048
  2. CELECOXIB. [Suspect]
     Active Substance: CELECOXIB
     Indication: DISCOMFORT

REACTIONS (4)
  - Drug ineffective [Unknown]
  - Seizure [Unknown]
  - Arthralgia [Unknown]
  - Arthritis [Recovering/Resolving]
